FAERS Safety Report 4357856-0 (Version None)
Quarter: 2004Q2

REPORT INFORMATION
  Report Type: 
  Country: None (occurrence: None)
  Receive Date: 20040514
  Receipt Date: 20040510
  Transmission Date: 20050107
  Serious: Yes (Death)
  Sender: FDA-Public Use
  Company Number: 200411610JP

PATIENT
  Sex: 0

DRUGS (3)
  1. TAXOTERE [Suspect]
     Indication: NON-SMALL CELL LUNG CANCER
     Route: 041
  2. NEDAPLATIN [Suspect]
     Indication: NON-SMALL CELL LUNG CANCER
     Route: 041
  3. RADIATION [Suspect]
     Indication: NON-SMALL CELL LUNG CANCER

REACTIONS (1)
  - HAEMOPTYSIS [None]
